FAERS Safety Report 5027393-9 (Version None)
Quarter: 2006Q2

REPORT INFORMATION
  Report Type: 
  Country: None (occurrence: None)
  Receive Date: 20060501
  Receipt Date: 20060210
  Transmission Date: 20061013
  Serious: Yes (Other)
  Sender: FDA-Public Use
  Company Number: 200610741BWH

PATIENT
  Age: 52 Year
  Sex: Male

DRUGS (6)
  1. NEXAVAR [Suspect]
     Indication: RENAL CELL CARCINOMA RECURRENT
     Dosage: 400 MG, BID, ORAL
     Route: 048
     Dates: start: 20060201
  2. ATIVAN [Concomitant]
  3. LISINOPRIL [Concomitant]
  4. ZOCOR [Concomitant]
  5. LASIX [Concomitant]
  6. BACTROBAN [Concomitant]

REACTIONS (4)
  - ABDOMINAL PAIN [None]
  - ANGINA PECTORIS [None]
  - NIPPLE PAIN [None]
  - NIPPLE SWELLING [None]
